FAERS Safety Report 14516216 (Version 8)
Quarter: 2022Q1

REPORT INFORMATION
  Report Type: Report from Study
  Country: DE (occurrence: DE)
  Receive Date: 20180211
  Receipt Date: 20220316
  Transmission Date: 20220424
  Serious: Yes (Hospitalization, Other)
  Sender: FDA-Public Use
  Company Number: DE-BRISTOL-MYERS SQUIBB COMPANY-BMS-2018-006180

PATIENT
  Age: 65 Year
  Sex: Female

DRUGS (15)
  1. HUMIRA [Suspect]
     Active Substance: ADALIMUMAB
     Indication: Product used for unknown indication
     Route: 058
  2. ABATACEPT [Suspect]
     Active Substance: ABATACEPT
     Indication: Rheumatoid arthritis
     Dosage: 125 MG, QWK
     Route: 058
     Dates: start: 20171025
  3. LACRIMAL [Concomitant]
     Indication: Product used for unknown indication
     Dosage: LACRIMAL EYE DROPS
     Route: 065
  4. MAGNESIUM [Concomitant]
     Active Substance: MAGNESIUM
     Indication: Product used for unknown indication
     Route: 065
  5. PANTOPRAZOLE [Concomitant]
     Active Substance: PANTOPRAZOLE
     Indication: Product used for unknown indication
     Route: 065
  6. DICLOFENAC [Concomitant]
     Active Substance: DICLOFENAC
     Indication: Product used for unknown indication
     Route: 065
  7. FENOTEROL HYDROBROMIDE [Concomitant]
     Active Substance: FENOTEROL HYDROBROMIDE
     Indication: Product used for unknown indication
     Route: 065
  8. FENOTEROL HYDROBROMIDE\IPRATROPIUM BROMIDE [Concomitant]
     Active Substance: FENOTEROL HYDROBROMIDE\IPRATROPIUM BROMIDE
     Indication: Product used for unknown indication
     Route: 065
  9. ISONIAZID [Concomitant]
     Active Substance: ISONIAZID
     Indication: Product used for unknown indication
     Route: 065
  10. CHOLECALCIFEROL [Concomitant]
     Active Substance: CHOLECALCIFEROL
     Indication: Product used for unknown indication
     Route: 065
  11. CELESTAMINE [Concomitant]
     Active Substance: BETAMETHASONE\DEXCHLORPHENIRAMINE MALEATE
     Indication: Product used for unknown indication
     Route: 065
  12. BETAMETHASONE [Concomitant]
     Active Substance: BETAMETHASONE
     Indication: Product used for unknown indication
  13. POLYVINYL ALCOHOL [Concomitant]
     Active Substance: POLYVINYL ALCOHOL
     Indication: Product used for unknown indication
     Route: 065
  14. IPRATROPIUM BROMIDE [Concomitant]
     Active Substance: IPRATROPIUM BROMIDE
     Indication: Product used for unknown indication
  15. FORMOTEROL [Concomitant]
     Active Substance: FORMOTEROL
     Indication: Product used for unknown indication

REACTIONS (15)
  - Contraindicated product administered [Unknown]
  - Mental fatigue [Unknown]
  - Lumbar spinal stenosis [Recovered/Resolved]
  - Rheumatoid arthritis [Recovered/Resolved]
  - Fibromyalgia [Recovered/Resolved]
  - Cataract [Recovered/Resolved]
  - Bronchitis [Recovered/Resolved]
  - Pain [Recovered/Resolved]
  - Squamous cell carcinoma of skin [Unknown]
  - Oral herpes [Unknown]
  - Hypoaesthesia [Recovered/Resolved]
  - Dry eye [Recovered/Resolved]
  - Influenza like illness [Recovered/Resolved]
  - Conjunctivitis [Recovered/Resolved]
  - Pityriasis rosea [Recovered/Resolved]

NARRATIVE: CASE EVENT DATE: 20171025
